FAERS Safety Report 9316871 (Version 2)
Quarter: 2013Q2

REPORT INFORMATION
  Report Type: Spontaneous
  Country: US (occurrence: None)
  Receive Date: 20130522
  Receipt Date: 20130603
  Transmission Date: 20140414
  Serious: Yes (Death)
  Sender: FDA-Public Use
  Company Number: UTC-032800

PATIENT
  Age: 63 Year
  Sex: Male
  Weight: 59.1 kg

DRUGS (2)
  1. TYVASO [Suspect]
     Indication: COR PULMONALE CHRONIC
     Dosage: 18 TO 72 MICROGRAMS (4 IN 1 D), INHALATION?
     Route: 055
     Dates: start: 20100929
  2. WARFARIN (UNKNOWN) [Concomitant]
     Indication: PRODUCT USED FOR UNKNOWN INDICATION

REACTIONS (1)
  - Death [None]
